FAERS Safety Report 6753154-6 (Version None)
Quarter: 2010Q2

REPORT INFORMATION
  Report Type: 
  Country: None (occurrence: None)
  Receive Date: 20100603
  Receipt Date: 20100524
  Transmission Date: 20101027
  Serious: Yes (Other)
  Sender: FDA-Public Use
  Company Number: US-PFIZER INC-2010061334

PATIENT
  Sex: Female
  Weight: 101.13 kg

DRUGS (4)
  1. CHANTIX [Suspect]
     Indication: SMOKING CESSATION THERAPY
     Dosage: UNK
     Route: 048
     Dates: start: 20100506, end: 20100515
  2. SYNTHROID [Suspect]
     Indication: HYPERTHYROIDISM
     Dosage: UNK, 1X/DAY
     Route: 048
     Dates: start: 19990101
  3. ACIPHEX [Concomitant]
     Dosage: 20 MG, 2X/DAY
     Route: 048
  4. ACETYLSALICYLIC ACID [Concomitant]
     Dosage: 81 MG, 2X/DAY
     Route: 048

REACTIONS (7)
  - CONFUSIONAL STATE [None]
  - HOSTILITY [None]
  - HYPERSENSITIVITY [None]
  - MOOD ALTERED [None]
  - RIB FRACTURE [None]
  - ROAD TRAFFIC ACCIDENT [None]
  - SKIN EXFOLIATION [None]
